FAERS Safety Report 7068492-X (Version None)
Quarter: 2010Q4

REPORT INFORMATION
  Report Type: 
  Country: None (occurrence: None)
  Receive Date: 20101028
  Receipt Date: 20101019
  Transmission Date: 20110411
  Serious: Yes (Other)
  Sender: FDA-Public Use
  Company Number: US-JNJFOC-20101005503

PATIENT
  Sex: Male
  Weight: 61.24 kg

DRUGS (1)
  1. LEVAQUIN [Suspect]
     Indication: URINARY TRACT INFECTION
     Route: 048

REACTIONS (4)
  - EYELID PTOSIS [None]
  - HEADACHE [None]
  - PUPILLARY DISORDER [None]
  - VISUAL FIELD DEFECT [None]
